FAERS Safety Report 7109106-X (Version None)
Quarter: 2010Q4

REPORT INFORMATION
  Report Type: 
  Country: None (occurrence: None)
  Receive Date: 20101117
  Receipt Date: 20101110
  Transmission Date: 20110411
  Serious: Yes (Hospitalization, Other)
  Sender: FDA-Public Use
  Company Number: FR-PFIZER INC-2010144472

PATIENT
  Age: 88 Year
  Sex: Female

DRUGS (15)
  1. EFFEXOR XR [Suspect]
     Dosage: 75 MG, 1X/DAY
     Route: 048
  2. LOVENOX [Suspect]
     Dosage: 1.4 ML, 1X/DAY
     Route: 058
     Dates: start: 20100920, end: 20100924
  3. KARDEGIC [Suspect]
     Dosage: 1 DF, UNK
     Route: 048
     Dates: start: 20100913
  4. AMLOR [Concomitant]
     Dosage: 1 DF, 2X/DAY
     Route: 048
     Dates: start: 20100916, end: 20100927
  5. AUGMENTIN '125' [Concomitant]
     Dosage: 1 DF, 3X/DAY
     Route: 048
     Dates: start: 20100916, end: 20100926
  6. ACUPAN [Concomitant]
     Dosage: 1 DF, 4X/DAY
     Route: 042
     Dates: start: 20100920
  7. CORDARONE [Concomitant]
     Dosage: 200 MG, 1X/DAY
     Route: 048
     Dates: start: 20100913
  8. GABAPENTIN [Concomitant]
     Dosage: 600 MG, 2X/DAY
     Route: 048
     Dates: start: 20100913, end: 20100927
  9. ATARAX [Concomitant]
     Dosage: 0.5 DF, 1X/DAY
     Route: 048
     Dates: start: 20100913, end: 20100927
  10. GLUCOR [Concomitant]
     Dosage: 1 DF, 3X/DAY
     Route: 048
     Dates: start: 20100914, end: 20100927
  11. IXPRIM [Concomitant]
     Dosage: 1 DF, 4X/DAY
     Route: 048
     Dates: start: 20100922, end: 20100926
  12. CALCIPARINE [Concomitant]
     Dosage: 1.5 ML, 1X/DAY
     Route: 058
     Dates: start: 20100913, end: 20100920
  13. LASIX [Concomitant]
     Dosage: 40 MG, 1X/DAY
     Route: 048
     Dates: start: 20100913, end: 20100927
  14. ENALAPRIL MALEATE [Concomitant]
     Dosage: 20 MG, 1X/DAY
     Route: 048
     Dates: start: 20100913, end: 20100916
  15. TOPALGIC [Concomitant]
     Dosage: 150 MG, 2X/DAY
     Route: 048
     Dates: start: 20100913, end: 20100920

REACTIONS (4)
  - CEREBROVASCULAR ACCIDENT [None]
  - INJECTION SITE ERYTHEMA [None]
  - LIMB DISCOMFORT [None]
  - RETROPERITONEAL HAEMATOMA [None]
